FAERS Safety Report 15001678 (Version 1)
Quarter: 2018Q2

REPORT INFORMATION
  Report Type: Spontaneous
  Country: GB (occurrence: GB)
  Receive Date: 20180612
  Receipt Date: 20180612
  Transmission Date: 20180711
  Serious: Yes (Other)
  Sender: FDA-Public Use
  Company Number: GB-BAYER-2018-106059

PATIENT
  Age: 26 Year
  Sex: Female
  Weight: 63 kg

DRUGS (4)
  1. METFORMIN HYDROCHLORIDE. [Concomitant]
     Active Substance: METFORMIN HYDROCHLORIDE
  2. LAMOTRIGINE. [Concomitant]
     Active Substance: LAMOTRIGINE
  3. MULTIVITAMIN [Concomitant]
     Active Substance: VITAMINS
  4. MIRENA [Suspect]
     Active Substance: LEVONORGESTREL
     Indication: DYSMENORRHOEA
     Dosage: 20 MCG/24HR, CONT
     Route: 015

REACTIONS (11)
  - Orgasm abnormal [Unknown]
  - Mood swings [Unknown]
  - Coital bleeding [Unknown]
  - Weight increased [Unknown]
  - Menorrhagia [Not Recovered/Not Resolved]
  - Acne [Unknown]
  - Nausea [Unknown]
  - Suicidal ideation [Unknown]
  - Pelvic pain [Unknown]
  - Abdominal pain lower [Not Recovered/Not Resolved]
  - Food craving [Unknown]

NARRATIVE: CASE EVENT DATE: 20170927
